FAERS Safety Report 14559291 (Version 3)
Quarter: 2018Q1

REPORT INFORMATION
  Report Type: Report from Study
  Country: US (occurrence: US)
  Receive Date: 20180221
  Receipt Date: 20180320
  Transmission Date: 20180509
  Serious: Yes (Hospitalization, Other)
  Sender: FDA-Public Use
  Company Number: US-BAYER-2018-029522

PATIENT
  Age: 75 Year
  Sex: Male

DRUGS (1)
  1. STIVARGA [Suspect]
     Active Substance: REGORAFENIB
     Indication: COLON CANCER
     Dosage: DAILY DOSE 80 MG
     Route: 048
     Dates: start: 20180206, end: 20180212

REACTIONS (8)
  - Food refusal [None]
  - Constipation [None]
  - Confusional state [None]
  - Aphonia [None]
  - Decreased appetite [None]
  - Off label use [None]
  - Oligodipsia [None]
  - Dehydration [None]

NARRATIVE: CASE EVENT DATE: 201802
